FAERS Safety Report 11345174 (Version 1)
Quarter: 2015Q3

REPORT INFORMATION
  Report Type: Spontaneous
  Country: US (occurrence: None)
  Receive Date: 20150805
  Receipt Date: 20150805
  Transmission Date: 20151125
  Serious: Yes (Hospitalization)
  Sender: FDA-Public Use
  Company Number: None

PATIENT
  Age: 78 Year
  Sex: Female

DRUGS (11)
  1. GLIMEPIRIDE. [Concomitant]
     Active Substance: GLIMEPIRIDE
  2. COENZYME Q10 [Concomitant]
     Active Substance: UBIDECARENONE
  3. ALBUTEROL. [Concomitant]
     Active Substance: ALBUTEROL
  4. CALCIUM + VITAMIN D [Concomitant]
     Active Substance: CALCIUM\VITAMIN D
  5. ENALAPRIL [Concomitant]
     Active Substance: ENALAPRIL
  6. MULTIVITAMIN [Concomitant]
     Active Substance: VITAMINS
  7. SENNA [Concomitant]
     Active Substance: SENNA LEAF\SENNOSIDES\SENNOSIDES A AND B
  8. PRAVASTATIN [Concomitant]
     Active Substance: PRAVASTATIN\PRAVASTATIN SODIUM
  9. CONJUGATED ESTROGENS [Concomitant]
     Active Substance: ESTROGENS, CONJUGATED
  10. RIVAROXABAN [Suspect]
     Active Substance: RIVAROXABAN
     Indication: ATRIAL FIBRILLATION
     Route: 048
     Dates: end: 20141109
  11. SOTALOL. [Concomitant]
     Active Substance: SOTALOL

REACTIONS (2)
  - Basal ganglia haemorrhage [None]
  - Blood pressure systolic increased [None]

NARRATIVE: CASE EVENT DATE: 20141109
